FAERS Safety Report 5321681-4 (Version None)
Quarter: 2007Q2

REPORT INFORMATION
  Report Type: 
  Country: None (occurrence: None)
  Receive Date: 20070504
  Receipt Date: 20070427
  Transmission Date: 20071010
  Serious: Yes (Hospitalization)
  Sender: FDA-Public Use
  Company Number: 163-C5013-07041524

PATIENT
  Age: 66 Year
  Sex: Male
  Weight: 86.1834 kg

DRUGS (1)
  1. CC-5013 (LENALIDOMIDE) (CAPSULES) [Suspect]
     Indication: CHRONIC LYMPHOCYTIC LEUKAEMIA
     Dosage: TID FOR 28 DAYS PER CYCLE, ORAL
     Route: 048
     Dates: start: 20070419, end: 20070426

REACTIONS (4)
  - DEHYDRATION [None]
  - EOSINOPHILIC PNEUMONIA [None]
  - MALAISE [None]
  - NO THERAPEUTIC RESPONSE [None]
